FAERS Safety Report 23644657 (Version 1)
Quarter: 2024Q1

REPORT INFORMATION
  Report Type: Spontaneous
  Country: GB (occurrence: GB)
  Receive Date: 20240318
  Receipt Date: 20240318
  Transmission Date: 20240410
  Serious: Yes (Other)
  Sender: FDA-Public Use
  Company Number: None

PATIENT
  Sex: Female

DRUGS (1)
  1. XALATAN [Suspect]
     Active Substance: LATANOPROST
     Indication: Glaucoma
     Dosage: UNK
     Route: 065

REACTIONS (8)
  - Memory impairment [Recovered/Resolved]
  - Photopsia [Recovered/Resolved]
  - Diplopia [Recovered/Resolved]
  - Weight increased [Recovered/Resolved]
  - Aphasia [Recovered/Resolved]
  - Fall [Recovered/Resolved]
  - Visual impairment [Recovered/Resolved]
  - Photophobia [Recovered/Resolved]
